FAERS Safety Report 16029420 (Version 1)
Quarter: 2019Q1

REPORT INFORMATION
  Report Type: Spontaneous
  Country: US (occurrence: US)
  Receive Date: 20190304
  Receipt Date: 20190304
  Transmission Date: 20190418
  Serious: No
  Sender: FDA-Public Use
  Company Number: US-IMPAX LABORATORIES, LLC-2018-IPXL-01451

PATIENT
  Sex: Male
  Weight: 79 kg

DRUGS (3)
  1. RASAGILINE. [Concomitant]
     Active Substance: RASAGILINE
     Indication: PRODUCT USED FOR UNKNOWN INDICATION
     Dosage: UNK
     Route: 048
  2. RYTARY [Suspect]
     Active Substance: CARBIDOPA\LEVODOPA
     Dosage: 48.75/195 MG; 2 CAPSULES, THREE TIMES A DAY, AND EXTRA DOSE AT BEDTIME
     Route: 048
     Dates: start: 201804
  3. RYTARY [Suspect]
     Active Substance: CARBIDOPA\LEVODOPA
     Indication: PARKINSON^S DISEASE
     Dosage: 48.75/195 MG; 2 CAPSULES, THREE TIMES A DAY
     Route: 048
     Dates: start: 201803, end: 201804

REACTIONS (4)
  - Dyskinesia [Not Recovered/Not Resolved]
  - Drug effect delayed [Not Recovered/Not Resolved]
  - Feeling abnormal [Not Recovered/Not Resolved]
  - Tremor [Not Recovered/Not Resolved]

NARRATIVE: CASE EVENT DATE: 2018
